FAERS Safety Report 23698992 (Version 1)
Quarter: 2024Q2

REPORT INFORMATION
  Report Type: Spontaneous
  Country: US (occurrence: None)
  Receive Date: 20240402
  Receipt Date: 20240402
  Transmission Date: 20240715
  Serious: Yes (Hospitalization)
  Sender: FDA-Public Use
  Company Number: None

PATIENT
  Age: 23 Year
  Sex: Female

DRUGS (1)
  1. DEFERASIROX [Suspect]
     Active Substance: DEFERASIROX
     Indication: Sickle cell disease
     Dosage: 720MG QD PO
     Route: 048
     Dates: start: 202207

REACTIONS (2)
  - Sickle cell anaemia [None]
  - Transfusion [None]

NARRATIVE: CASE EVENT DATE: 20240328
